FAERS Safety Report 6529413-9 (Version None)
Quarter: 2010Q1

REPORT INFORMATION
  Report Type: 
  Country: None (occurrence: None)
  Receive Date: 20100104
  Receipt Date: 20091221
  Transmission Date: 20100710
  Serious: Yes (Hospitalization)
  Sender: FDA-Public Use
  Company Number: 008223

PATIENT
  Age: 77 Year
  Sex: Female

DRUGS (3)
  1. PLETAL [Suspect]
     Dosage: ORAL
     Route: 048
  2. WARFARIN SODIUM [Concomitant]
  3. ASPIRIN [Concomitant]

REACTIONS (3)
  - ATRIAL FIBRILLATION [None]
  - HAEMOGLOBIN DECREASED [None]
  - RENAL HAEMATOMA [None]
